FAERS Safety Report 6274506-7 (Version None)
Quarter: 2009Q3

REPORT INFORMATION
  Report Type: 
  Country: None (occurrence: None)
  Receive Date: 20090716
  Receipt Date: 20090706
  Transmission Date: 20100115
  Serious: Yes (Death)
  Sender: FDA-Public Use
  Company Number: US-2009-00182

PATIENT
  Age: 65 Year
  Sex: Female
  Weight: 147.419 kg

DRUGS (1)
  1. CEFTRIAXON [Suspect]
     Dosage: HAD RECEIVED SAME DOSE ON 5/31/08
     Dates: start: 20080804, end: 20080804

REACTIONS (5)
  - DYSPNOEA [None]
  - FEELING HOT [None]
  - LOSS OF CONSCIOUSNESS [None]
  - MALAISE [None]
  - NASOPHARYNGITIS [None]
